FAERS Safety Report 21006167 (Version 1)
Quarter: 2022Q2

REPORT INFORMATION
  Report Type: Report from Study
  Country: US (occurrence: US)
  Receive Date: 20220624
  Receipt Date: 20220624
  Transmission Date: 20220720
  Serious: Yes (Other)
  Sender: FDA-Public Use
  Company Number: US-MYLANLABS-2022M1047640

PATIENT
  Age: 12 Year
  Sex: Female

DRUGS (10)
  1. LEVETIRACETAM [Suspect]
     Active Substance: LEVETIRACETAM
     Indication: Epileptic encephalopathy
     Dosage: UNK
     Route: 065
  2. LEVETIRACETAM [Suspect]
     Active Substance: LEVETIRACETAM
     Indication: Seizure
  3. FELBAMATE [Suspect]
     Active Substance: FELBAMATE
     Indication: Epileptic encephalopathy
     Dosage: UNK
     Route: 065
  4. FELBAMATE [Suspect]
     Active Substance: FELBAMATE
     Indication: Seizure
  5. CLONAZEPAM [Suspect]
     Active Substance: CLONAZEPAM
     Indication: Epileptic encephalopathy
     Dosage: UNK
     Route: 065
  6. CLONAZEPAM [Suspect]
     Active Substance: CLONAZEPAM
     Indication: Seizure
  7. PHENOBARBITAL [Suspect]
     Active Substance: PHENOBARBITAL
     Indication: Epileptic encephalopathy
     Dosage: UNK
     Route: 065
  8. PHENOBARBITAL [Suspect]
     Active Substance: PHENOBARBITAL
     Indication: Seizure
  9. LACOSAMIDE [Suspect]
     Active Substance: LACOSAMIDE
     Indication: Epileptic encephalopathy
     Dosage: UNK
     Route: 065
  10. LACOSAMIDE [Suspect]
     Active Substance: LACOSAMIDE
     Indication: Seizure

REACTIONS (2)
  - Renal failure [Unknown]
  - Off label use [Unknown]
